FAERS Safety Report 8036639-4 (Version None)
Quarter: 2012Q1

REPORT INFORMATION
  Report Type: 
  Country: None (occurrence: None)
  Receive Date: 20120111
  Receipt Date: 20111227
  Transmission Date: 20120608
  Serious: Yes (Hospitalization, Other)
  Sender: FDA-Public Use
  Company Number: JP-ROCHE-1025678

PATIENT
  Age: 67 Year
  Sex: Male

DRUGS (1)
  1. CLONAZEPAM [Suspect]
     Indication: MULTIPLE SCLEROSIS
     Dosage: DOSAGE IS UNCERTAIN.
     Route: 048

REACTIONS (2)
  - CATATONIA [None]
  - DEPRESSED LEVEL OF CONSCIOUSNESS [None]
